FAERS Safety Report 4436293-4 (Version None)
Quarter: 2004Q3

REPORT INFORMATION
  Report Type: 
  Country: None (occurrence: None)
  Receive Date: 20040830
  Receipt Date: 20040713
  Transmission Date: 20050211
  Serious: No
  Sender: FDA-Public Use
  Company Number: US-BRISTOL-MYERS SQUIBB COMPANY-12638748

PATIENT
  Age: 63 Year
  Sex: Female
  Weight: 73 kg

DRUGS (6)
  1. ERBITUX [Suspect]
     Indication: SMALL INTESTINE CARCINOMA
     Dosage: INITIAL DOSE, 2ND TREATMENT 15-APR-04, TREATMENT WITHHELD
     Route: 042
     Dates: start: 20040408, end: 20040408
  2. ANZEMET [Concomitant]
     Indication: PREMEDICATION
     Dosage: PRE-MED 1ST INFUSION
     Route: 042
     Dates: start: 20040408, end: 20040408
  3. BENADRYL [Concomitant]
     Indication: PREMEDICATION
     Dosage: PRE-MED BEFORE 1ST INFUSION
     Route: 042
     Dates: start: 20040408, end: 20040408
  4. DECADRON [Concomitant]
     Indication: PREMEDICATION
     Dosage: PRE-MED BEFORE 1ST INFUSION
     Route: 042
     Dates: start: 20040408, end: 20040408
  5. TYLENOL [Concomitant]
     Indication: PREMEDICATION
     Dosage: PRE-MED BEFORE 1ST INFUSION
     Route: 048
     Dates: start: 20040408, end: 20040408
  6. VITAMIN CAP [Concomitant]

REACTIONS (2)
  - RASH [None]
  - TOXIC SKIN ERUPTION [None]
